FAERS Safety Report 8200153 (Version 2)
Quarter: 2012Q4

REPORT INFORMATION
  Report Type: Report from Study
  Country: US (occurrence: US)
  Receive Date: 20111026
  Receipt Date: 20121211
  Transmission Date: 20130627
  Serious: Yes (Hospitalization, Congenital Anomaly, Other)
  Sender: FDA-Public Use
  Company Number: US-ABBOTT-11P-163-0867287-00

PATIENT
  Age: 0 Year
  Sex: Male
  Weight: 1.3 kg

DRUGS (1)
  1. HUMIRA 40 MG/ 0.8 ML PRE-FILLED SYRINGE [Suspect]
     Indication: MATERNAL EXPOSURE TIMING UNSPECIFIED
     Route: 064

REACTIONS (13)
  - Oesophageal atresia [Unknown]
  - Tracheo-oesophageal fistula [Unknown]
  - Hypospadias [Unknown]
  - Inguinal hernia [Unknown]
  - Ventricular septal defect [Unknown]
  - Premature baby [Unknown]
  - Congenital anomaly [Unknown]
  - Spine malformation [Unknown]
  - Single umbilical artery [Unknown]
  - Congenital spinal cord anomaly [Unknown]
  - Congenital anomaly [Unknown]
  - Genitalia external ambiguous [Unknown]
  - Foetal exposure during pregnancy [Unknown]
